FAERS Safety Report 15112854 (Version 7)
Quarter: 2019Q1

REPORT INFORMATION
  Report Type: Spontaneous
  Country: GB (occurrence: GB)
  Receive Date: 20180705
  Receipt Date: 20190129
  Transmission Date: 20190417
  Serious: Yes (Other)
  Sender: FDA-Public Use
  Company Number: GB-009507513-1806GBR011380

PATIENT
  Age: 35 Year
  Sex: Female
  Weight: 86 kg

DRUGS (2)
  1. NEXPLANON [Suspect]
     Active Substance: ETONOGESTREL
     Dosage: 1 IMPLANT IN LEFT ARM, UNK (FREQUENCY REPORTED AS ONCE)
     Route: 058
     Dates: start: 20170118
  2. NEXPLANON [Suspect]
     Active Substance: ETONOGESTREL
     Indication: CONTRACEPTION
     Dosage: 1 IMPLANT IN LEFT ARM, UNK (FREQUENCY REPORTED AS ONCE)
     Route: 058
     Dates: start: 20170118

REACTIONS (5)
  - Unintended pregnancy [Recovered/Resolved]
  - Product dose omission [Unknown]
  - Abortion induced [Recovered/Resolved]
  - Pregnancy with implant contraceptive [Recovered/Resolved]
  - Complication associated with device [Not Recovered/Not Resolved]

NARRATIVE: CASE EVENT DATE: 20171017
